FAERS Safety Report 20564818 (Version 1)
Quarter: 2022Q1

REPORT INFORMATION
  Report Type: Spontaneous
  Country: US (occurrence: US)
  Receive Date: 20220308
  Receipt Date: 20220308
  Transmission Date: 20220423
  Serious: No
  Sender: FDA-Public Use
  Company Number: US-ALLERGAN-2128409US

PATIENT
  Age: 76 Year
  Sex: Female
  Weight: 89.342 kg

DRUGS (4)
  1. ESTRADIOL [Suspect]
     Active Substance: ESTRADIOL
     Indication: Vulvovaginal dryness
     Dosage: 1 G, QPM
     Route: 067
     Dates: start: 20210721, end: 20210721
  2. ESTRADIOL [Suspect]
     Active Substance: ESTRADIOL
     Indication: Blood urine present
  3. ESTRADIOL [Suspect]
     Active Substance: ESTRADIOL
     Indication: Genital discomfort
  4. MYRBETRIQ [Concomitant]
     Active Substance: MIRABEGRON
     Indication: Pollakiuria
     Dosage: UNK

REACTIONS (3)
  - Hyperhidrosis [Recovered/Resolved]
  - Tremor [Recovered/Resolved]
  - Off label use [Unknown]

NARRATIVE: CASE EVENT DATE: 20210721
